FAERS Safety Report 12974179 (Version 1)
Quarter: 2016Q4

REPORT INFORMATION
  Report Type: Spontaneous
  Country: US (occurrence: US)
  Receive Date: 20161125
  Receipt Date: 20161125
  Transmission Date: 20170207
  Serious: Yes (Hospitalization)
  Sender: FDA-Public Use
  Company Number: US-ASTRAZENECA-2016SF23265

PATIENT
  Age: 45 Year
  Sex: Female
  Weight: 167.8 kg

DRUGS (13)
  1. PULMICORT FLEXHALER [Suspect]
     Active Substance: BUDESONIDE
     Indication: SEASONAL ALLERGY
     Dosage: 90 UG, 2 PUFFS, TWO TIMES A DAY
     Route: 055
     Dates: start: 20160915
  2. CITALOPRAM [Concomitant]
     Active Substance: CITALOPRAM HYDROBROMIDE
     Indication: DEPRESSION
     Route: 048
     Dates: start: 201604
  3. PULMICORT FLEXHALER [Suspect]
     Active Substance: BUDESONIDE
     Indication: SEASONAL ALLERGY
     Dosage: 90 UG, 2 PUFFS, TWO TIMES A DAY
     Route: 055
     Dates: start: 2014, end: 2014
  4. PULMICORT FLEXHALER [Suspect]
     Active Substance: BUDESONIDE
     Indication: ASTHMA
     Dosage: 90 UG, 2 PUFFS, TWO TIMES A DAY
     Route: 055
     Dates: start: 20160915
  5. CITALOPRAM [Concomitant]
     Active Substance: CITALOPRAM HYDROBROMIDE
     Indication: ANXIETY
     Route: 048
     Dates: start: 201604
  6. PULMICORT FLEXHALER [Suspect]
     Active Substance: BUDESONIDE
     Indication: BRONCHITIS
     Dosage: 90 UG, 2 PUFFS, TWO TIMES A DAY
     Route: 055
     Dates: start: 2014, end: 2014
  7. ALLEGRA OVER THE COUNTER [Concomitant]
     Indication: NASAL CONGESTION
     Route: 048
     Dates: start: 20160915
  8. ESTRADOIL ESTROGEN PATCH [Concomitant]
     Indication: MENOPAUSAL SYMPTOMS
     Route: 062
     Dates: start: 201608
  9. PULMICORT FLEXHALER [Suspect]
     Active Substance: BUDESONIDE
     Indication: ASTHMA
     Dosage: 90 UG, 2 PUFFS, TWO TIMES A DAY
     Route: 055
     Dates: start: 2014, end: 2014
  10. METOPROLOL. [Suspect]
     Active Substance: METOPROLOL
     Indication: BLOOD PRESSURE MEASUREMENT
     Route: 048
     Dates: start: 2011
  11. ALBUTEROL. [Concomitant]
     Active Substance: ALBUTEROL
     Indication: INHALATION THERAPY
     Dosage: AS REQUIRED
     Route: 055
     Dates: start: 20160915
  12. PULMICORT FLEXHALER [Suspect]
     Active Substance: BUDESONIDE
     Indication: BRONCHITIS
     Dosage: 90 UG, 2 PUFFS, TWO TIMES A DAY
     Route: 055
     Dates: start: 20160915
  13. ALLEGRA OVER THE COUNTER [Concomitant]
     Indication: ALLERGY PROPHYLAXIS
     Route: 048
     Dates: start: 20160915

REACTIONS (12)
  - Circumstance or information capable of leading to medication error [Not Recovered/Not Resolved]
  - Bronchitis chronic [Not Recovered/Not Resolved]
  - Asthma [Not Recovered/Not Resolved]
  - Product use issue [Not Recovered/Not Resolved]
  - Off label use [Not Recovered/Not Resolved]
  - Fatigue [Not Recovered/Not Resolved]
  - Allergy to animal [Not Recovered/Not Resolved]
  - Hypersensitivity [Not Recovered/Not Resolved]
  - Dyspnoea [Not Recovered/Not Resolved]
  - Product taste abnormal [Not Recovered/Not Resolved]
  - Intentional product misuse [Recovered/Resolved]
  - Sinusitis [Not Recovered/Not Resolved]

NARRATIVE: CASE EVENT DATE: 2014
